FAERS Safety Report 4776463-9 (Version None)
Quarter: 2005Q3

REPORT INFORMATION
  Report Type: 
  Country: None (occurrence: None)
  Receive Date: 20050922
  Receipt Date: 20050620
  Transmission Date: 20060218
  Serious: Yes (Hospitalization, Disabling)
  Sender: FDA-Public Use
  Company Number: US-MERCK-0506USA02942

PATIENT
  Age: 70 Year
  Sex: Female
  Weight: 75 kg

DRUGS (2)
  1. VIOXX [Suspect]
     Indication: HEADACHE
     Route: 048
     Dates: start: 20020401, end: 20030701
  2. IBUPROFEN [Concomitant]
     Route: 065

REACTIONS (12)
  - AMNESIA [None]
  - ASTHENIA [None]
  - BLOOD CHOLESTEROL INCREASED [None]
  - CEREBROVASCULAR ACCIDENT [None]
  - DEPRESSION [None]
  - DYSPNOEA [None]
  - FALL [None]
  - MYOCARDIAL INFARCTION [None]
  - OBESITY [None]
  - OEDEMA PERIPHERAL [None]
  - OESOPHAGEAL DISORDER [None]
  - SYNCOPE [None]
